FAERS Safety Report 7435433-2 (Version None)
Quarter: 2011Q2

REPORT INFORMATION
  Report Type: 
  Country: None (occurrence: None)
  Receive Date: 20110425
  Receipt Date: 20110419
  Transmission Date: 20111010
  Serious: Yes (Other)
  Sender: FDA-Public Use
  Company Number: JP-MERCK-1104USA02951

PATIENT

DRUGS (3)
  1. ALEVIATIN [Suspect]
     Route: 048
  2. JANUVIA [Suspect]
     Route: 048
  3. PHENOBAL [Suspect]
     Route: 048

REACTIONS (2)
  - EPILEPSY [None]
  - DRUG INTERACTION [None]
